FAERS Safety Report 15127516 (Version 1)
Quarter: 2018Q3

REPORT INFORMATION
  Report Type: Spontaneous
  Country: CN (occurrence: CN)
  Receive Date: 20180710
  Receipt Date: 20180710
  Transmission Date: 20181010
  Serious: Yes (Other)
  Sender: FDA-Public Use
  Company Number: CN-BAYER-2018-124445

PATIENT
  Age: 86 Year
  Sex: Male
  Weight: 70 kg

DRUGS (3)
  1. DOXOFYLLINE [Concomitant]
     Active Substance: DOXOFYLLINE
     Indication: CHRONIC OBSTRUCTIVE PULMONARY DISEASE
     Dosage: 300 MG, QD
     Route: 041
     Dates: start: 20180415, end: 20180419
  2. AVELOX [Suspect]
     Active Substance: MOXIFLOXACIN HYDROCHLORIDE
     Indication: CHRONIC OBSTRUCTIVE PULMONARY DISEASE
     Dosage: 400 MG, QD
     Route: 041
     Dates: start: 20180417, end: 20180419
  3. METHYLPREDNISOLONE SODIUM SUCCINATE. [Suspect]
     Active Substance: METHYLPREDNISOLONE SODIUM SUCCINATE
     Indication: CHRONIC OBSTRUCTIVE PULMONARY DISEASE
     Dosage: 40 ?G, QD
     Route: 041
     Dates: start: 20180418, end: 20180418

REACTIONS (5)
  - Hallucination, visual [Recovering/Resolving]
  - Delirium [Recovering/Resolving]
  - Irritability [Recovering/Resolving]
  - Confusional state [Recovering/Resolving]
  - Hallucination, auditory [Recovering/Resolving]

NARRATIVE: CASE EVENT DATE: 20180419
